FAERS Safety Report 12849649 (Version 3)
Quarter: 2016Q4

REPORT INFORMATION
  Report Type: Spontaneous
  Country: DE (occurrence: DE)
  Receive Date: 20161014
  Receipt Date: 20161129
  Transmission Date: 20170207
  Serious: Yes (Hospitalization, Other)
  Sender: FDA-Public Use
  Company Number: DE-NOVOPROD-514689

PATIENT
  Age: 18 Year
  Sex: Female
  Weight: 72 kg

DRUGS (5)
  1. FLUTIDE [Concomitant]
     Active Substance: FLUTICASONE PROPIONATE
     Indication: ASTHMA
     Route: 055
  2. VIANI [Concomitant]
     Active Substance: FLUTICASONE PROPIONATE\SALMETEROL XINAFOATE
     Indication: ASTHMA
  3. SALBUTAMOL [Concomitant]
     Active Substance: ALBUTEROL
     Indication: ASTHMA
     Route: 055
  4. NOVORAPID [Suspect]
     Active Substance: INSULIN ASPART
     Indication: TYPE 1 DIABETES MELLITUS
     Dosage: 75 IU, AND AS REQUIRED
     Route: 058
     Dates: start: 20150831
  5. AMOXILLIN                          /00249602/ [Concomitant]
     Active Substance: AMOXICILLIN
     Dosage: UNK
     Dates: start: 20151105, end: 20151110

REACTIONS (5)
  - Asthma [Recovered/Resolved]
  - Diabetic ketoacidosis [Not Recovered/Not Resolved]
  - Diabetes mellitus inadequate control [Recovered/Resolved]
  - Diabetic ketoacidosis [Not Recovered/Not Resolved]
  - Diabetic ketoacidosis [Not Recovered/Not Resolved]

NARRATIVE: CASE EVENT DATE: 20150831
